FAERS Safety Report 24863869 (Version 1)
Quarter: 2025Q1

REPORT INFORMATION
  Report Type: Spontaneous
  Country: US (occurrence: US)
  Receive Date: 20250120
  Receipt Date: 20250120
  Transmission Date: 20250409
  Serious: No
  Sender: Phathom Pharmaceuticals
  Company Number: US-PHATHOM PHARMACEUTICALS INC.-2024PHT01211

PATIENT
  Age: 60 Year
  Sex: Female

DRUGS (9)
  1. VOQUEZNA [Suspect]
     Active Substance: VONOPRAZAN FUMARATE
     Indication: Gastrooesophageal reflux disease
     Dosage: 20 MG, 1X/DAY
     Route: 048
     Dates: start: 20241005, end: 20241028
  2. TRAMADOL [Suspect]
     Active Substance: TRAMADOL
     Dates: start: 20241005, end: 202410
  3. ALPRAZOLAM [Concomitant]
     Active Substance: ALPRAZOLAM
  4. LEVOTHYROXINE [Concomitant]
     Active Substance: LEVOTHYROXINE
  5. VALSARTAN [Concomitant]
     Active Substance: VALSARTAN
  6. ROSUVASTATIN [Concomitant]
     Active Substance: ROSUVASTATIN
  7. TRINTELLIX [Concomitant]
     Active Substance: VORTIOXETINE HYDROBROMIDE
  8. MAGNESIUM [Concomitant]
     Active Substance: MAGNESIUM
  9. BUDESONIDE [Concomitant]
     Active Substance: BUDESONIDE

REACTIONS (5)
  - Pollakiuria [Recovering/Resolving]
  - Nocturia [Recovering/Resolving]
  - Diarrhoea [Recovering/Resolving]
  - Defaecation urgency [Recovering/Resolving]
  - Blood magnesium decreased [Recovering/Resolving]

NARRATIVE: CASE EVENT DATE: 20241001
